FAERS Safety Report 5112688-0 (Version None)
Quarter: 2006Q3

REPORT INFORMATION
  Report Type: 
  Country: None (occurrence: None)
  Receive Date: 20060922
  Receipt Date: 20030526
  Transmission Date: 20061208
  Serious: Yes (Hospitalization)
  Sender: FDA-Public Use
  Company Number: SE-GLAXOSMITHKLINE-B0300933A

PATIENT
  Age: 36 Year
  Sex: Female

DRUGS (2)
  1. LAMICTAL [Suspect]
     Indication: EPILEPSY
     Dosage: 250MG PER DAY
     Route: 048
     Dates: start: 19970101
  2. PHENYTOIN SODIUM CAP [Concomitant]

REACTIONS (6)
  - ATRIAL CONDUCTION TIME PROLONGATION [None]
  - BRADYCARDIA [None]
  - SICK SINUS SYNDROME [None]
  - SINOATRIAL BLOCK [None]
  - STATUS EPILEPTICUS [None]
  - WHIPLASH INJURY [None]
